FAERS Safety Report 5027387-3 (Version None)
Quarter: 2006Q2

REPORT INFORMATION
  Report Type: 
  Country: None (occurrence: None)
  Receive Date: 20060501
  Receipt Date: 20060223
  Transmission Date: 20061013
  Serious: Yes (Hospitalization)
  Sender: FDA-Public Use
  Company Number: 200611054BWH

PATIENT
  Age: 53 Year
  Sex: Male

DRUGS (4)
  1. SORAFENIB [Suspect]
     Indication: MALIGNANT MELANOMA
     Dosage: 400 MG, BID, ORAL
     Route: 048
     Dates: start: 20060216, end: 20060221
  2. CARBOPLATIN [Suspect]
     Indication: MALIGNANT MELANOMA
     Dosage: 978 MG, TOTAL DAILY, INTRAVENOUS
     Route: 042
     Dates: start: 20060215
  3. PACLITAXEL [Suspect]
     Indication: MALIGNANT MELANOMA
     Dosage: 552 MG, TOTAL DAILY, INTRAVENOUS
     Route: 042
     Dates: start: 20060215
  4. NEULASTA [Concomitant]

REACTIONS (1)
  - NEUTROPENIA [None]
